FAERS Safety Report 11866083 (Version 2)
Quarter: 2015Q4

REPORT INFORMATION
  Report Type: Spontaneous
  Country: TW (occurrence: TW)
  Receive Date: 20151223
  Receipt Date: 20151223
  Transmission Date: 20160305
  Serious: Yes (Hospitalization)
  Sender: FDA-Public Use
  Company Number: TW-ACTAVIS-2015-14770

PATIENT
  Age: 47 Year
  Sex: Female

DRUGS (10)
  1. CLONAZEPAM (UNKNOWN) [Interacting]
     Active Substance: CLONAZEPAM
     Dosage: 2 MG, DAILY
     Route: 065
  2. TRIHEXYPHENIDYL HYDROCHLORIDE (WATSON LABORATORIES) [Suspect]
     Active Substance: TRIHEXYPHENIDYL HYDROCHLORIDE
     Dosage: 2 MG, DAILY
     Route: 065
  3. FLURAZEPAM [Interacting]
     Active Substance: FLURAZEPAM\FLURAZEPAM HYDROCHLORIDE
     Indication: SCHIZOPHRENIA, PARANOID TYPE
     Dosage: 480 MG, SINGLE
     Route: 065
  4. RISPERIDONE (UNKNOWN) [Interacting]
     Active Substance: RISPERIDONE
     Indication: SCHIZOPHRENIA, PARANOID TYPE
     Dosage: 96 MG, SINGLE
     Route: 065
  5. MIDAZOLAM [Interacting]
     Active Substance: MIDAZOLAM\MIDAZOLAM HYDROCHLORIDE
     Indication: SCHIZOPHRENIA, PARANOID TYPE
     Dosage: 120 MG, SINGLE
     Route: 065
  6. TRIHEXYPHENIDYL HYDROCHLORIDE (WATSON LABORATORIES) [Suspect]
     Active Substance: TRIHEXYPHENIDYL HYDROCHLORIDE
     Indication: SCHIZOPHRENIA, PARANOID TYPE
     Dosage: 32 MG, SINGLE
     Route: 065
  7. RISPERIDONE (UNKNOWN) [Interacting]
     Active Substance: RISPERIDONE
     Dosage: 6 MG, DAILY
     Route: 065
  8. CLONAZEPAM (UNKNOWN) [Interacting]
     Active Substance: CLONAZEPAM
     Indication: SCHIZOPHRENIA, PARANOID TYPE
     Dosage: 32 MG, SINGLE
     Route: 065
  9. MIDAZOLAM [Interacting]
     Active Substance: MIDAZOLAM\MIDAZOLAM HYDROCHLORIDE
     Dosage: 7.5 MG, DAILY
     Route: 065
  10. FLURAZEPAM [Interacting]
     Active Substance: FLURAZEPAM\FLURAZEPAM HYDROCHLORIDE
     Dosage: 30 MG, DAILY
     Route: 065

REACTIONS (7)
  - Weight increased [Unknown]
  - Suicide attempt [Recovered/Resolved]
  - Intentional overdose [Recovered/Resolved]
  - Myoclonus [Recovered/Resolved]
  - Sinus tachycardia [Recovered/Resolved]
  - Drug interaction [Recovered/Resolved]
  - Rhabdomyolysis [Recovered/Resolved]
